FAERS Safety Report 16468472 (Version 4)
Quarter: 2019Q3

REPORT INFORMATION
  Report Type: Report from Study
  Country: BE (occurrence: BE)
  Receive Date: 20190624
  Receipt Date: 20190924
  Transmission Date: 20191004
  Serious: Yes (Other)
  Sender: FDA-Public Use
  Company Number: BE-ROCHE-2338858

PATIENT
  Age: 58 Year
  Sex: Female
  Weight: 59.3 kg

DRUGS (49)
  1. PARACETAMOL [Concomitant]
     Active Substance: ACETAMINOPHEN
     Route: 042
     Dates: start: 20190506, end: 20190506
  2. PARACETAMOL [Concomitant]
     Active Substance: ACETAMINOPHEN
     Route: 065
     Dates: start: 20190619
  3. TAVEGYL [Concomitant]
     Active Substance: CLEMASTINE FUMARATE
     Dosage: 2 MG/2 ML
     Route: 042
     Dates: start: 20190527, end: 20190527
  4. NIQUITIN [NICOTINE] [Concomitant]
     Route: 065
     Dates: start: 201811, end: 20190415
  5. LITICAN [ALIZAPRIDE HYDROCHLORIDE] [Concomitant]
     Route: 065
     Dates: start: 20190819, end: 20190819
  6. NORMAL SALINE [Concomitant]
     Active Substance: SODIUM CHLORIDE
     Route: 065
     Dates: start: 20190819, end: 20190819
  7. PARACETAMOL [Concomitant]
     Active Substance: ACETAMINOPHEN
     Route: 042
     Dates: start: 20190415, end: 20190415
  8. PARACETAMOL [Concomitant]
     Active Substance: ACETAMINOPHEN
     Route: 042
     Dates: start: 20190729, end: 20190729
  9. DENTIO [Concomitant]
     Route: 065
     Dates: start: 20190819, end: 20190819
  10. LITICAN [ALIZAPRIDE HYDROCHLORIDE] [Concomitant]
     Route: 065
     Dates: start: 20190617, end: 20190617
  11. LITICAN [ALIZAPRIDE HYDROCHLORIDE] [Concomitant]
     Route: 042
     Dates: start: 20190708, end: 20190708
  12. ZANTAC [Concomitant]
     Active Substance: RANITIDINE HYDROCHLORIDE
     Route: 042
     Dates: start: 20190909, end: 20190909
  13. PARACETAMOL [Concomitant]
     Active Substance: ACETAMINOPHEN
     Route: 042
     Dates: start: 20190527, end: 20190527
  14. DENTIO [Concomitant]
     Route: 065
     Dates: start: 20190909, end: 20190909
  15. TAVEGYL [Concomitant]
     Active Substance: CLEMASTINE FUMARATE
     Dosage: 2 MG/2 ML
     Route: 042
     Dates: start: 20190415, end: 20190415
  16. TAVEGYL [Concomitant]
     Active Substance: CLEMASTINE FUMARATE
     Dosage: 2MG/2ML
     Route: 042
     Dates: start: 20190909, end: 20190909
  17. ZANTAC [Concomitant]
     Active Substance: RANITIDINE HYDROCHLORIDE
     Route: 042
     Dates: start: 20190527, end: 20190527
  18. ZANTAC [Concomitant]
     Active Substance: RANITIDINE HYDROCHLORIDE
     Route: 042
     Dates: start: 20190729, end: 20190729
  19. ZANTAC [Concomitant]
     Active Substance: RANITIDINE HYDROCHLORIDE
     Route: 042
     Dates: start: 20190819, end: 20190819
  20. NORMAL SALINE [Concomitant]
     Active Substance: SODIUM CHLORIDE
     Route: 065
     Dates: start: 20190909, end: 20190909
  21. PANTOPRAZOLE [Concomitant]
     Active Substance: PANTOPRAZOLE
     Route: 065
     Dates: start: 20190305
  22. PARACETAMOL [Concomitant]
     Active Substance: ACETAMINOPHEN
     Route: 065
     Dates: start: 20190301
  23. PARACETAMOL [Concomitant]
     Active Substance: ACETAMINOPHEN
     Route: 065
     Dates: start: 20190612, end: 20190616
  24. PARACETAMOL [Concomitant]
     Active Substance: ACETAMINOPHEN
     Route: 042
     Dates: start: 20190819, end: 20190819
  25. TAVEGYL [Concomitant]
     Active Substance: CLEMASTINE FUMARATE
     Dosage: 2 MG/2 ML
     Route: 042
     Dates: start: 20190506, end: 20190506
  26. TAVEGYL [Concomitant]
     Active Substance: CLEMASTINE FUMARATE
     Route: 065
     Dates: start: 20190617, end: 20190617
  27. NORMAL SALINE [Concomitant]
     Active Substance: SODIUM CHLORIDE
     Route: 065
     Dates: start: 20190729, end: 20190729
  28. ATEZOLIZUMAB. [Suspect]
     Active Substance: ATEZOLIZUMAB
     Indication: OESOPHAGEAL SQUAMOUS CELL CARCINOMA
     Dosage: MOST RECENT DOSE ON 27/MAY/2019 AT 11:50
     Route: 042
     Dates: start: 20190415
  29. PARACETAMOL [Concomitant]
     Active Substance: ACETAMINOPHEN
     Indication: TUMOUR PAIN
     Route: 065
     Dates: start: 201809, end: 20190228
  30. PARACETAMOL [Concomitant]
     Active Substance: ACETAMINOPHEN
     Route: 065
     Dates: start: 20190617, end: 20190617
  31. PARACETAMOL [Concomitant]
     Active Substance: ACETAMINOPHEN
     Route: 042
     Dates: start: 20190708, end: 20190708
  32. NIQUITIN [NICOTINE] [Concomitant]
     Route: 065
     Dates: start: 20190416
  33. TAVEGYL [Concomitant]
     Active Substance: CLEMASTINE FUMARATE
     Dosage: 2MG/2ML
     Route: 042
     Dates: start: 20190819, end: 20190819
  34. ZANTAC [Concomitant]
     Active Substance: RANITIDINE HYDROCHLORIDE
     Route: 042
     Dates: start: 20190708, end: 20190708
  35. NORMAL SALINE [Concomitant]
     Active Substance: SODIUM CHLORIDE
     Route: 065
     Dates: start: 20190617, end: 20190617
  36. NORMAL SALINE [Concomitant]
     Active Substance: SODIUM CHLORIDE
     Route: 065
     Dates: start: 20190708, end: 20190708
  37. PARACETAMOL [Concomitant]
     Active Substance: ACETAMINOPHEN
     Route: 042
     Dates: start: 20190909, end: 20190909
  38. MOVICOL [Concomitant]
     Active Substance: POLYETHYLENE GLYCOL 3350\POTASSIUM CHLORIDE\SODIUM BICARBONATE\SODIUM CHLORIDE
     Indication: CONSTIPATION
     Route: 065
     Dates: start: 201809, end: 201903
  39. TAVEGYL [Concomitant]
     Active Substance: CLEMASTINE FUMARATE
     Dosage: 2 MG/2 ML
     Route: 042
     Dates: start: 20190708, end: 20190708
  40. LITICAN [ALIZAPRIDE HYDROCHLORIDE] [Concomitant]
     Route: 042
     Dates: start: 20190506, end: 20190506
  41. LITICAN [ALIZAPRIDE HYDROCHLORIDE] [Concomitant]
     Route: 065
     Dates: start: 20190729, end: 20190729
  42. ZANTAC [Concomitant]
     Active Substance: RANITIDINE HYDROCHLORIDE
     Route: 042
     Dates: start: 20190617, end: 20190617
  43. NORMAL SALINE [Concomitant]
     Active Substance: SODIUM CHLORIDE
     Route: 065
     Dates: start: 20190527, end: 20190527
  44. RO6874281 (FAP IL2V MAB) [Suspect]
     Active Substance: SIMLUKAFUSP ALFA
     Indication: OESOPHAGEAL SQUAMOUS CELL CARCINOMA
     Dosage: MOST RECENT DOSE (5 MG) ON 27/MAY/2019 AT 13:25
     Route: 042
     Dates: start: 20190415
  45. DENTIO [Concomitant]
     Indication: PERIODONTAL DISEASE
     Route: 065
     Dates: start: 201809, end: 20190701
  46. TAVEGYL [Concomitant]
     Active Substance: CLEMASTINE FUMARATE
     Dosage: 2MG/2ML
     Route: 042
     Dates: start: 20190729, end: 20190729
  47. LITICAN [ALIZAPRIDE HYDROCHLORIDE] [Concomitant]
     Route: 065
     Dates: start: 20190527, end: 20190527
  48. LITICAN [ALIZAPRIDE HYDROCHLORIDE] [Concomitant]
     Route: 065
     Dates: start: 20190909, end: 20190909
  49. ZANTAC [Concomitant]
     Active Substance: RANITIDINE HYDROCHLORIDE
     Route: 042
     Dates: start: 20190506, end: 20190506

REACTIONS (1)
  - Lymphocyte count decreased [Recovered/Resolved]

NARRATIVE: CASE EVENT DATE: 20190528
